FAERS Safety Report 8302106-3 (Version None)
Quarter: 2012Q2

REPORT INFORMATION
  Report Type: 
  Country: None (occurrence: None)
  Receive Date: 20120420
  Receipt Date: 20120409
  Transmission Date: 20120825
  Serious: Yes (Hospitalization)
  Sender: FDA-Public Use
  Company Number: US-PERRIGO-12US003041

PATIENT
  Age: 9 Year
  Sex: Female
  Weight: 31 kg

DRUGS (6)
  1. TRIAMCINOLONE ACETONIDE [Suspect]
     Dosage: UNK, UNDER OCCLUSION
     Route: 061
  2. AQUAPHOR [Concomitant]
     Indication: PSORIASIS
     Dosage: WITH 10% LIQUOR CARBONIS DETERGENS, BID, ALTERNATING QOD WITH TRIAMCINOLONE
     Route: 061
  3. PETROLATUM [Concomitant]
     Indication: DERMATITIS EXFOLIATIVE
     Dosage: UNK
     Route: 061
  4. TRIAMCINOLONE ACETONIDE [Suspect]
     Indication: PSORIASIS
     Dosage: APPLIED TO VARIOUS AREAS OF SKIN, QOD
     Route: 061
  5. TRIAMCINOLONE ACETONIDE [Suspect]
     Indication: DERMATITIS EXFOLIATIVE
     Dosage: APPLIED 2 TO 3 TIMES DAILY TO AT LEAST 50% OF SKIN SURFACE
     Route: 061
  6. TAR BATHS [Concomitant]
     Indication: PSORIASIS
     Dosage: UNK
     Route: 061

REACTIONS (1)
  - HYPOTHALAMO-PITUITARY DISORDER [None]
